FAERS Safety Report 20064705 (Version 2)
Quarter: 2021Q4

REPORT INFORMATION
  Report Type: Report from Study
  Country: PL (occurrence: PL)
  Receive Date: 20211112
  Receipt Date: 20211217
  Transmission Date: 20220304
  Serious: Yes (Other)
  Sender: FDA-Public Use
  Company Number: PL-CELGENE-POL-20190203085

PATIENT
  Sex: Female

DRUGS (6)
  1. OZANIMOD [Suspect]
     Active Substance: OZANIMOD
     Indication: Multiple sclerosis
     Dosage: AS PER PROTOCOL
     Route: 048
     Dates: start: 20161109, end: 20190205
  2. BETANIL [Concomitant]
     Indication: Dizziness
     Dosage: 48 MILLIGRAM
     Route: 048
     Dates: start: 20170130
  3. PANTOPRAZOLE SODIUM [Concomitant]
     Active Substance: PANTOPRAZOLE SODIUM
     Indication: Helicobacter infection
     Dosage: 80 MILLIGRAM
     Route: 048
     Dates: start: 20180406
  4. PERINDOPRIL [Concomitant]
     Active Substance: PERINDOPRIL
     Indication: Hypertension
     Dosage: 5 MILLIGRAM
     Route: 048
  5. INDAPAMIDE [Concomitant]
     Active Substance: INDAPAMIDE
     Indication: Hypertension
     Dosage: 1.5 MILLIGRAM
     Route: 048
  6. SULODEXIDE [Concomitant]
     Active Substance: SULODEXIDE
     Indication: Thrombosis prophylaxis
     Dosage: 250 UNITS
     Route: 048
     Dates: start: 20161124

REACTIONS (1)
  - Invasive breast carcinoma [Recovered/Resolved]

NARRATIVE: CASE EVENT DATE: 20181204
